FAERS Safety Report 4525292-X (Version None)
Quarter: 2004Q4

REPORT INFORMATION
  Report Type: 
  Country: None (occurrence: None)
  Receive Date: 20041117
  Receipt Date: 20040316
  Transmission Date: 20050328
  Serious: Yes (Other)
  Sender: FDA-Public Use
  Company Number: 2004S1000880

PATIENT
  Age: 39 Year
  Sex: Male

DRUGS (4)
  1. CLOZAPINE [Suspect]
     Indication: PSYCHOTIC DISORDER
     Dosage: 100MG Q HS, ORAL
     Route: 048
     Dates: start: 20040218, end: 20040223
  2. CLOZAPINE [Suspect]
     Indication: SCHIZOPHRENIA
     Dosage: 100MG Q HS, ORAL
     Route: 048
     Dates: start: 20040218, end: 20040223
  3. DIVALPROEX SODIUM [Concomitant]
  4. OLANZAPINE [Concomitant]

REACTIONS (3)
  - GAIT DISTURBANCE [None]
  - PRURITUS [None]
  - PSYCHOTIC DISORDER [None]
